FAERS Safety Report 10486989 (Version 5)
Quarter: 2015Q4

REPORT INFORMATION
  Report Type: Report from Study
  Country: US (occurrence: US)
  Receive Date: 20141001
  Receipt Date: 20151225
  Transmission Date: 20160304
  Serious: Yes (Other)
  Sender: FDA-Public Use
  Company Number: PHEH2014US013408

PATIENT
  Sex: Female

DRUGS (1)
  1. SANDOSTATIN LAR DEPOT [Suspect]
     Active Substance: OCTREOTIDE ACETATE
     Indication: CARCINOID SYNDROME
     Dosage: 30 MG, UNK
     Route: 065

REACTIONS (9)
  - Terminal state [Unknown]
  - Breast cancer [Unknown]
  - Second primary malignancy [Unknown]
  - Neoplasm [Unknown]
  - Dyspnoea [Unknown]
  - Feeling abnormal [Unknown]
  - Anxiety [Unknown]
  - Hypovitaminosis [Unknown]
  - Mineral deficiency [Unknown]
